FAERS Safety Report 24911476 (Version 1)
Quarter: 2025Q1

REPORT INFORMATION
  Report Type: Spontaneous
  Country: CN (occurrence: CN)
  Receive Date: 20250131
  Receipt Date: 20250131
  Transmission Date: 20250409
  Serious: Yes (Other)
  Sender: ALEXION PHARMACEUTICALS
  Company Number: CN-ASTRAZENECA-202501GLO026160CN

PATIENT
  Age: 49 Year
  Weight: 45 kg

DRUGS (1)
  1. OLAPARIB [Suspect]
     Active Substance: OLAPARIB
     Indication: Uterine cancer

REACTIONS (3)
  - Malignant neoplasm progression [Recovered/Resolved]
  - Metastases to lymph nodes [Recovered/Resolved]
  - Metastases to pelvis [Recovered/Resolved]
